FAERS Safety Report 18181152 (Version 1)
Quarter: 2020Q3

REPORT INFORMATION
  Report Type: Spontaneous
  Country: FR (occurrence: FR)
  Receive Date: 20200821
  Receipt Date: 20200821
  Transmission Date: 20201103
  Serious: Yes (Life-Threatening)
  Sender: FDA-Public Use
  Company Number: FR-ASTRAZENECA-2020SF03928

PATIENT
  Age: 66 Year
  Sex: Male
  Weight: 70 kg

DRUGS (2)
  1. BRILIQUE [Suspect]
     Active Substance: TICAGRELOR
     Indication: ACUTE CORONARY SYNDROME
     Route: 048
     Dates: start: 20200729
  2. KARDEGIC [Concomitant]
     Active Substance: ASPIRIN DL-LYSINE
     Indication: ACUTE CORONARY SYNDROME
     Route: 048
     Dates: start: 20200729

REACTIONS (2)
  - Cardiac arrest [Recovered/Resolved]
  - Atrioventricular block [Recovered/Resolved]

NARRATIVE: CASE EVENT DATE: 20200729
